FAERS Safety Report 15142350 (Version 1)
Quarter: 2018Q3

REPORT INFORMATION
  Report Type: Spontaneous
  Country: US (occurrence: US)
  Receive Date: 20180713
  Receipt Date: 20180713
  Transmission Date: 20181010
  Serious: Yes (Other)
  Sender: FDA-Public Use
  Company Number: US-BAUSCH-BL-2018-019188

PATIENT
  Sex: Male

DRUGS (2)
  1. PIRFENIDONE. [Concomitant]
     Active Substance: PIRFENIDONE
     Indication: PRODUCT USED FOR UNKNOWN INDICATION
  2. EFUDEX [Suspect]
     Active Substance: FLUOROURACIL
     Indication: PRECANCEROUS SKIN LESION
     Route: 065

REACTIONS (4)
  - Condition aggravated [Recovering/Resolving]
  - Precancerous skin lesion [Recovering/Resolving]
  - Impaired healing [Recovering/Resolving]
  - Rash macular [Recovering/Resolving]
